FAERS Safety Report 6547078-7 (Version None)
Quarter: 2010Q1

REPORT INFORMATION
  Report Type: 
  Country: None (occurrence: None)
  Receive Date: 20100122
  Receipt Date: 20100108
  Transmission Date: 20100710
  Serious: Yes (Other)
  Sender: FDA-Public Use
  Company Number: JP-PFIZER INC-2009263019

PATIENT
  Age: 75 Year
  Sex: Male
  Weight: 57 kg

DRUGS (7)
  1. NORVASC [Suspect]
     Indication: HYPERTENSION
     Dosage: 2.5 MG, 1X/DAY
     Route: 048
     Dates: start: 20070802
  2. ARICEPT [Suspect]
     Indication: DEMENTIA WITH LEWY BODIES
     Dosage: 3 MG, 1X/DAY
     Route: 048
     Dates: start: 20090216, end: 20090302
  3. ARICEPT [Suspect]
     Dosage: 5 MG, 1X/DAY
     Route: 048
     Dates: start: 20090303, end: 20090731
  4. OLMETEC [Suspect]
     Dosage: 20 MG, 1X/DAY
     Route: 048
     Dates: start: 20080726
  5. FLIVAS [Suspect]
     Indication: BENIGN PROSTATIC HYPERPLASIA
     Dosage: 50 MG, 1X/DAY
     Route: 048
     Dates: start: 20090324
  6. MEVALOTIN [Suspect]
     Indication: HYPERLIPIDAEMIA
     Dosage: 5 MG, 1X/DAY
     Route: 048
     Dates: start: 20090212
  7. EVIPROSTAT [Suspect]
     Indication: BENIGN PROSTATIC HYPERPLASIA
     Dosage: 1 DF, 2X/DAY
     Route: 048
     Dates: start: 20090810

REACTIONS (1)
  - PROSTATE CANCER [None]
